FAERS Safety Report 9709019 (Version 1)
Quarter: 2013Q4

REPORT INFORMATION
  Report Type: Spontaneous
  Country: US (occurrence: US)
  Receive Date: 20131125
  Receipt Date: 20131125
  Transmission Date: 20140711
  Serious: Yes (Death, Other)
  Sender: FDA-Public Use
  Company Number: PHHY2013US133290

PATIENT
  Age: 10 Year
  Sex: Female

DRUGS (2)
  1. CARBOPLATIN [Suspect]
     Indication: BRAIN STEM GLIOMA
     Dosage: 35 MG/M2/DAY
     Route: 042
  2. ETOPOSIDE [Suspect]
     Dosage: 50 MG/M2, FOR 21 DAYS EVERY 28 DAYS
     Route: 048

REACTIONS (2)
  - Death [Fatal]
  - Neutropenia [Unknown]
